FAERS Safety Report 5362329-2 (Version None)
Quarter: 2007Q2

REPORT INFORMATION
  Report Type: 
  Country: None (occurrence: None)
  Receive Date: 20070619
  Receipt Date: 20070614
  Transmission Date: 20071010
  Serious: Yes (Other)
  Sender: FDA-Public Use
  Company Number: GB-MERCK-0702GBR00081

PATIENT
  Age: 72 Year
  Sex: Female
  Weight: 68 kg

DRUGS (6)
  1. FOSAMAX [Suspect]
     Route: 048
  2. CELECOXIB [Suspect]
     Route: 048
  3. FOLIC ACID [Suspect]
     Route: 048
  4. INFLIXIMAB [Suspect]
     Route: 042
     Dates: start: 20060420, end: 20060928
  5. METHOTREXATE [Suspect]
     Route: 048
  6. OMEPRAZOLE [Suspect]
     Route: 048

REACTIONS (2)
  - CEREBRAL INFARCTION [None]
  - LOSS OF CONSCIOUSNESS [None]
